FAERS Safety Report 15605730 (Version 1)
Quarter: 2018Q4

REPORT INFORMATION
  Report Type: Spontaneous
  Country: BE (occurrence: BE)
  Receive Date: 20181112
  Receipt Date: 20181112
  Transmission Date: 20190205
  Serious: Yes (Other)
  Sender: FDA-Public Use
  Company Number: BE-TEVA-2018-BE-973995

PATIENT
  Age: 47 Year
  Sex: Female

DRUGS (4)
  1. ETOPOSIDE. [Suspect]
     Active Substance: ETOPOSIDE
     Indication: ENDOMETRIAL CANCER METASTATIC
     Dosage: SIX CYCLES OF THREE WEEKLY CHEMOTHERAPY WITH CISPLATIN ON DAY 1-3
     Route: 042
  2. CISPLATIN. [Suspect]
     Active Substance: CISPLATIN
     Indication: SMALL CELL CARCINOMA
  3. CISPLATIN. [Suspect]
     Active Substance: CISPLATIN
     Indication: ENDOMETRIAL CANCER METASTATIC
     Dosage: SIX CYCLES OF THREE WEEKLY CHEMOTHERAPY WITH CISPLATIN ON DAY 1
     Route: 042
  4. ETOPOSIDE. [Suspect]
     Active Substance: ETOPOSIDE
     Indication: SMALL CELL CARCINOMA

REACTIONS (9)
  - Neutropenia [Unknown]
  - Tumour lysis syndrome [Unknown]
  - Thrombocytopenia [Unknown]
  - Nausea [Unknown]
  - Vomiting [Unknown]
  - Anaemia [Unknown]
  - Renal failure [Unknown]
  - Alopecia [Unknown]
  - Drug effect incomplete [Unknown]
